FAERS Safety Report 7608802-5 (Version None)
Quarter: 2011Q3

REPORT INFORMATION
  Report Type: 
  Country: None (occurrence: None)
  Receive Date: 20110713
  Receipt Date: 20110713
  Transmission Date: 20111222
  Serious: No
  Sender: FDA-Public Use
  Company Number: None

PATIENT
  Age: 62 Year
  Sex: Female
  Weight: 53.978 kg

DRUGS (1)
  1. CIPROFLOXACIN [Suspect]
     Indication: TENDON RUPTURE
     Dosage: 500MG ONE TABLET TWICE A DAY BY MOUTH
     Route: 048
     Dates: start: 20100714

REACTIONS (1)
  - JOINT RANGE OF MOTION DECREASED [None]
